FAERS Safety Report 25797650 (Version 1)
Quarter: 2025Q3

REPORT INFORMATION
  Report Type: Spontaneous
  Country: GB (occurrence: GB)
  Receive Date: 20250912
  Receipt Date: 20250912
  Transmission Date: 20251020
  Serious: Yes (Other)
  Sender: HETERO
  Company Number: None

PATIENT
  Age: 77 Year
  Sex: Male
  Weight: 114 kg

DRUGS (1)
  1. FINASTERIDE [Suspect]
     Active Substance: FINASTERIDE
     Indication: Benign prostatic hyperplasia
     Route: 065

REACTIONS (7)
  - Neuropathy peripheral [Unknown]
  - Erectile dysfunction [Not Recovered/Not Resolved]
  - Medication error [Unknown]
  - Gynaecomastia [Unknown]
  - Loss of libido [Unknown]
  - Penile size reduced [Unknown]
  - Depression [Unknown]
